FAERS Safety Report 5966461-1 (Version None)
Quarter: 2008Q4

REPORT INFORMATION
  Report Type: 
  Country: None (occurrence: None)
  Receive Date: 20081125
  Receipt Date: 20081114
  Transmission Date: 20090506
  Serious: Yes (Life-Threatening, Hospitalization)
  Sender: FDA-Public Use
  Company Number: BE-ROCHE-595942

PATIENT
  Age: 77 Year
  Sex: Female
  Weight: 62.5 kg

DRUGS (16)
  1. MIRCERA [Suspect]
     Dosage: TAKEN ONCE
     Route: 042
     Dates: start: 20081105, end: 20081105
  2. NEORECORMON [Concomitant]
     Dosage: STRENGTH: 20000 IU
     Dates: start: 20070101, end: 20081101
  3. CARVEDILOL [Concomitant]
     Dosage: DOSAGE REGIMEN: DAILY
     Route: 048
  4. RENAGEL [Concomitant]
     Indication: PROPHYLAXIS
     Route: 048
     Dates: start: 20070101
  5. CALCIUM CARBONATE [Concomitant]
     Dosage: DRUG NAME: CALCIUMCARBONATE
  6. ZANTAC [Concomitant]
     Route: 048
  7. XANAX [Concomitant]
     Route: 048
  8. LASIX [Concomitant]
     Route: 048
  9. ZYLORIC [Concomitant]
     Dosage: DOSAGE REGIMEN: DAILY
     Route: 048
  10. LEVOTHYROXINE SODIUM [Concomitant]
     Route: 048
  11. SINTROM [Concomitant]
     Route: 048
  12. COVERSYL [Concomitant]
     Route: 048
  13. ASCORBIC ACID [Concomitant]
  14. VENOFER [Concomitant]
  15. BEPANTHEN [Concomitant]
  16. VITAMIN B1/VITAMIN B6 [Concomitant]
     Dosage: DRUG NAME: VITAMIN B1 AND B6

REACTIONS (1)
  - ANAPHYLACTIC SHOCK [None]
